FAERS Safety Report 10690166 (Version 1)
Quarter: 2015Q1

REPORT INFORMATION
  Report Type: Spontaneous
  Country: NL (occurrence: NL)
  Receive Date: 20150105
  Receipt Date: 20150105
  Transmission Date: 20150720
  Serious: Yes (Hospitalization)
  Sender: FDA-Public Use
  Company Number: NL-TEVA-531274ISR

PATIENT
  Age: 73 Year
  Sex: Female

DRUGS (8)
  1. ACETYLSALICYLZUUR DISPERTABLET 80MG [Concomitant]
     Active Substance: ASPIRIN
     Dosage: 80 MILLIGRAM DAILY;
     Route: 048
  2. ZOLPIDEM TABLET FO 10MG [Concomitant]
     Route: 048
  3. INEGY TABLET 10/40MG [Concomitant]
     Dosage: 1 DOSAGE FORMS DAILY;
     Route: 048
  4. NIFEDIPINE TABLET MGA 60MG [Concomitant]
     Dosage: 60 MILLIGRAM DAILY;
     Route: 048
  5. METOPROLOL TABLET MGA 200MG (TARTRAAT) [Concomitant]
     Dosage: 200 MILLIGRAM DAILY;
     Route: 048
  6. TRIMETHOPRIM TABLET 300MG [Suspect]
     Active Substance: TRIMETHOPRIM
     Dosage: 300 MILLIGRAM DAILY;
     Route: 048
     Dates: start: 20141017
  7. TELMISARTAN TABLET 80MG [Concomitant]
     Dosage: 80 MILLIGRAM DAILY;
     Route: 048
  8. OMEPRAZOL CAPSULE MGA 20MG [Concomitant]
     Dosage: 20 MILLIGRAM DAILY;
     Route: 048

REACTIONS (1)
  - Acute kidney injury [Unknown]

NARRATIVE: CASE EVENT DATE: 20141023
